FAERS Safety Report 23449587 (Version 3)
Quarter: 2024Q2

REPORT INFORMATION
  Report Type: Spontaneous
  Country: US (occurrence: US)
  Receive Date: 20240129
  Receipt Date: 20240502
  Transmission Date: 20240716
  Serious: Yes (Other)
  Sender: FDA-Public Use
  Company Number: US-NOVOPROD-1166725

PATIENT
  Sex: Male

DRUGS (2)
  1. NOVOLOG [Suspect]
     Active Substance: INSULIN ASPART
     Indication: Product used for unknown indication
     Dosage: 0-6 UNITS 3XDAY
     Route: 058
  2. INSULIN ASPART [Suspect]
     Active Substance: INSULIN ASPART
     Indication: Product used for unknown indication
     Dosage: 15 IU
     Route: 058
     Dates: start: 20240221

REACTIONS (5)
  - Throat tightness [Unknown]
  - Abdominal discomfort [Unknown]
  - Dyspnoea [Unknown]
  - Dysgeusia [Unknown]
  - Product contamination chemical [Unknown]

NARRATIVE: CASE EVENT DATE: 20231228
